APPROVED DRUG PRODUCT: IV PERSANTINE
Active Ingredient: DIPYRIDAMOLE
Strength: 5MG/ML **Federal Register determination that product was not discontinued or withdrawn for safety or effectiveness reasons**
Dosage Form/Route: INJECTABLE;INJECTION
Application: N019817 | Product #001
Applicant: BOEHRINGER INGELHEIM PHARMACEUTICALS INC
Approved: Dec 13, 1990 | RLD: Yes | RS: No | Type: DISCN